FAERS Safety Report 18171009 (Version 1)
Quarter: 2020Q3

REPORT INFORMATION
  Report Type: Report from Study
  Country: US (occurrence: US)
  Receive Date: 20200819
  Receipt Date: 20200819
  Transmission Date: 20201103
  Serious: Yes (Hospitalization, Other)
  Sender: FDA-Public Use
  Company Number: US-ACTELION-A-US2018-165483

PATIENT
  Sex: Male

DRUGS (4)
  1. ASPIRIN. [Concomitant]
     Active Substance: ASPIRIN
  2. DIURIL [Concomitant]
     Active Substance: CHLOROTHIAZIDE
  3. CARVEDILOL. [Concomitant]
     Active Substance: CARVEDILOL
  4. TRACLEER [Suspect]
     Active Substance: BOSENTAN
     Indication: PULMONARY ARTERIAL HYPERTENSION
     Dosage: 6.25 MG, BID
     Route: 048
     Dates: start: 20160523

REACTIONS (3)
  - Arterial occlusive disease [Unknown]
  - Cyanosis [Unknown]
  - Terminal state [Unknown]
